FAERS Safety Report 26144672 (Version 1)
Quarter: 2025Q4

REPORT INFORMATION
  Report Type: Spontaneous
  Country: US (occurrence: None)
  Receive Date: 20251210
  Receipt Date: 20251210
  Transmission Date: 20260118
  Serious: Yes (Life-Threatening, Hospitalization)
  Sender: FDA-CTU
  Company Number: None

PATIENT
  Age: 64 Year
  Sex: Female
  Weight: 54 kg

DRUGS (9)
  1. EVEROLIMUS [Suspect]
     Active Substance: EVEROLIMUS
     Indication: Breast cancer female
     Dosage: FREQUENCY : DAILY;
     Route: 047
     Dates: start: 20250812, end: 20251121
  2. CALTRATE WITH VITAMIN D [Concomitant]
     Active Substance: CALCIUM CARBONATE\CHOLECALCIFEROL
  3. COREG [Concomitant]
     Active Substance: CARVEDILOL
  4. EXEMESTANE [Concomitant]
     Active Substance: EXEMESTANE
  5. FARXIGA [Concomitant]
     Active Substance: DAPAGLIFLOZIN PROPANEDIOL
  6. LOSARTAN [Concomitant]
     Active Substance: LOSARTAN
  7. ROSUVASTATIN [Concomitant]
     Active Substance: ROSUVASTATIN
  8. TRAMADOL [Concomitant]
     Active Substance: TRAMADOL
  9. XGEVA [Concomitant]
     Active Substance: DENOSUMAB

REACTIONS (2)
  - Dyspnoea [None]
  - Ejection fraction decreased [None]

NARRATIVE: CASE EVENT DATE: 20251122
